FAERS Safety Report 4678986-X (Version None)
Quarter: 2005Q2

REPORT INFORMATION
  Report Type: 
  Country: None (occurrence: None)
  Receive Date: 20050531
  Receipt Date: 20050516
  Transmission Date: 20051028
  Serious: Yes (Hospitalization)
  Sender: FDA-Public Use
  Company Number: A0559655A

PATIENT
  Sex: Female

DRUGS (1)
  1. LAMICTAL [Suspect]

REACTIONS (8)
  - BLISTER [None]
  - BURN OF INTERNAL ORGANS [None]
  - DYSPHAGIA [None]
  - EMOTIONAL DISORDER [None]
  - INJURY [None]
  - NASOPHARYNGEAL DISORDER [None]
  - ORAL MUCOSAL BLISTERING [None]
  - SKIN LESION [None]
